FAERS Safety Report 6202977-0 (Version None)
Quarter: 2009Q2

REPORT INFORMATION
  Report Type: 
  Country: None (occurrence: None)
  Receive Date: 20090520
  Receipt Date: 20090505
  Transmission Date: 20091009
  Serious: Yes (Other)
  Sender: FDA-Public Use
  Company Number: 2009S1008136

PATIENT
  Age: 72 Year
  Sex: Male
  Weight: 36 kg

DRUGS (1)
  1. ALLOPURINOL [Suspect]
     Indication: HYPERURICAEMIA
     Dosage: ORAL
     Route: 048
     Dates: start: 20080801, end: 20081001

REACTIONS (3)
  - CHOLESTASIS [None]
  - DRUG ERUPTION [None]
  - PRURITUS [None]
